FAERS Safety Report 4659558-X (Version None)
Quarter: 2005Q2

REPORT INFORMATION
  Report Type: 
  Country: None (occurrence: None)
  Receive Date: 20050511
  Receipt Date: 20050321
  Transmission Date: 20051028
  Serious: Yes (Hospitalization)
  Sender: FDA-Public Use
  Company Number: US-MERCK-0503USA03746

PATIENT
  Age: 72 Year
  Sex: Male
  Weight: 90 kg

DRUGS (15)
  1. VIOXX [Suspect]
     Indication: ARTHRITIS
     Route: 048
     Dates: end: 20050123
  2. ECOTRIN [Suspect]
     Indication: ANALGESIC INTERVENTION SUPPORTIVE THERAPY
     Route: 048
     Dates: start: 19990101, end: 20050123
  3. CELEBREX [Suspect]
     Indication: ARTHRITIS
     Route: 048
     Dates: end: 20050123
  4. AVANDIA [Concomitant]
     Route: 048
  5. LIPITOR [Concomitant]
     Route: 048
  6. VITAMINS (UNSPECIFIED) [Concomitant]
     Route: 048
  7. FLUCONAZOLE [Concomitant]
     Route: 048
  8. ALTACE [Concomitant]
     Route: 048
  9. SULFAMETHOXAZOLE AND TRIMETHOPRIM [Concomitant]
     Route: 048
  10. ATENOLOL [Concomitant]
     Route: 065
  11. VITAMIN E [Concomitant]
     Route: 065
  12. TRAZODONE HYDROCHLORIDE [Concomitant]
     Route: 065
  13. TYLENOL [Concomitant]
     Route: 065
  14. LEVITRA [Concomitant]
     Route: 065
  15. BEXTRA [Suspect]
     Indication: ARTHRALGIA
     Route: 065
     Dates: end: 20050123

REACTIONS (10)
  - ATRIOVENTRICULAR BLOCK FIRST DEGREE [None]
  - AZOTAEMIA [None]
  - BENIGN PROSTATIC HYPERPLASIA [None]
  - BLOOD GLUCOSE INCREASED [None]
  - GASTRIC ULCER HAEMORRHAGE [None]
  - HEADACHE [None]
  - HELICOBACTER INFECTION [None]
  - PLATELET COUNT DECREASED [None]
  - VOLUME BLOOD DECREASED [None]
  - WHITE BLOOD CELL COUNT DECREASED [None]
